FAERS Safety Report 8156574-0 (Version None)
Quarter: 2012Q1

REPORT INFORMATION
  Report Type: 
  Country: None (occurrence: None)
  Receive Date: 20120221
  Receipt Date: 20120221
  Transmission Date: 20120608
  Serious: Yes (Hospitalization)
  Sender: FDA-Public Use
  Company Number: None

PATIENT
  Age: 80 Year
  Sex: Male
  Weight: 80 kg

DRUGS (2)
  1. DALTEPARIN SODIUM [Suspect]
     Indication: PULMONARY EMBOLISM
     Dosage: ML EVERY DAY SQ
     Route: 058
     Dates: start: 20110511, end: 20110721
  2. DALTEPARIN SODIUM [Suspect]
     Indication: DEEP VEIN THROMBOSIS
     Dosage: ML EVERY DAY SQ
     Route: 058
     Dates: start: 20110511, end: 20110721

REACTIONS (1)
  - HAEMORRHAGE [None]
